FAERS Safety Report 7639752-6 (Version None)
Quarter: 2011Q3

REPORT INFORMATION
  Report Type: 
  Country: None (occurrence: None)
  Receive Date: 20110727
  Receipt Date: 20110720
  Transmission Date: 20111222
  Serious: Yes (Death, Life-Threatening)
  Sender: FDA-Public Use
  Company Number: JP-CEPHALON-2011003898

PATIENT
  Age: 46 Year
  Sex: Female
  Weight: 48 kg

DRUGS (1)
  1. BENDAMUSTINE HCL [Suspect]
     Indication: B-CELL LYMPHOMA
     Route: 042
     Dates: start: 20110112, end: 20110113

REACTIONS (2)
  - DISEASE PROGRESSION [None]
  - SEPSIS [None]
